FAERS Safety Report 16171077 (Version 1)
Quarter: 2019Q2

REPORT INFORMATION
  Report Type: Report from Study
  Country: US (occurrence: US)
  Receive Date: 20190408
  Receipt Date: 20190408
  Transmission Date: 20190711
  Serious: Yes (Death)
  Sender: FDA-Public Use
  Company Number: US-PFIZER INC-2019146908

PATIENT

DRUGS (6)
  1. FLUOROURACIL. [Suspect]
     Active Substance: FLUOROURACIL
     Indication: GASTROOESOPHAGEAL CANCER
     Dosage: 400 MG/M2, CYCLIC (OVER 46 HOURS, EVERY 2 WEEKS)
     Route: 040
  2. AFLIBERCEPT [Suspect]
     Active Substance: AFLIBERCEPT
     Dosage: 2 MG/KG, CYCLIC (DOSE REDUCED, (EVERY 2 WEEKS))
     Route: 042
  3. OXALIPLATIN. [Suspect]
     Active Substance: OXALIPLATIN
     Indication: GASTROOESOPHAGEAL CANCER
     Dosage: 85 MG/M2, CYCLIC (OVER 120 MINUTES, EVERY 2 WEEKS)
     Route: 042
  4. FLUOROURACIL. [Suspect]
     Active Substance: FLUOROURACIL
     Dosage: 2400 MG/M2, CYCLIC (OVER 46 HOURS, EVERY 2 WEEKS))
     Route: 042
  5. AFLIBERCEPT [Suspect]
     Active Substance: AFLIBERCEPT
     Indication: GASTROOESOPHAGEAL CANCER
     Dosage: 4 MG/KG, CYCLIC (OVER 1 HOUR, EVERY 2 WEEKS)
     Route: 042
  6. LEUCOVORIN. [Suspect]
     Active Substance: LEUCOVORIN
     Indication: GASTROOESOPHAGEAL CANCER
     Dosage: 400 MG/M2, CYCLIC (OVER 120 MINUTES, EVERY 2 WEEKS)
     Route: 042

REACTIONS (1)
  - Intestinal perforation [Fatal]
